FAERS Safety Report 20983224 (Version 1)
Quarter: 2022Q2

REPORT INFORMATION
  Report Type: Spontaneous
  Country: IT (occurrence: IT)
  Receive Date: 20220620
  Receipt Date: 20220620
  Transmission Date: 20220721
  Serious: Yes (Other)
  Sender: FDA-Public Use
  Company Number: IT-MLMSERVICE-20220606-3598727-1

PATIENT
  Age: 44 Year
  Sex: Male

DRUGS (7)
  1. METRONIDAZOLE [Suspect]
     Active Substance: METRONIDAZOLE
     Indication: Antibiotic therapy
     Dosage: 500 MG, TID (8 HOURS)
     Route: 065
  2. CEFTAZIDIME [Suspect]
     Active Substance: CEFTAZIDIME
     Indication: Evidence based treatment
     Dosage: 2 G, TID (EVERY 8HOURS)
     Route: 065
  3. ALPRAZOLAM [Concomitant]
     Active Substance: ALPRAZOLAM
     Indication: Anxiety
     Dosage: BEFORE MEALS
     Route: 065
  4. ALPRAZOLAM [Concomitant]
     Active Substance: ALPRAZOLAM
     Indication: Panic attack
  5. ESCITALOPRAM [Concomitant]
     Active Substance: ESCITALOPRAM OXALATE
     Indication: Anxiety
     Dosage: BEFORE MEALS
     Route: 065
  6. ESCITALOPRAM [Concomitant]
     Active Substance: ESCITALOPRAM OXALATE
     Indication: Panic attack
  7. OXYGEN [Concomitant]
     Active Substance: OXYGEN
     Indication: Pneumonia aspiration
     Dosage: 15 L
     Route: 065

REACTIONS (3)
  - Hepatitis acute [Recovered/Resolved]
  - Acute hepatic failure [Recovered/Resolved]
  - Drug-induced liver injury [Recovered/Resolved]
